FAERS Safety Report 14162264 (Version 2)
Quarter: 2017Q4

REPORT INFORMATION
  Report Type: Report from Study
  Country: US (occurrence: US)
  Receive Date: 20171106
  Receipt Date: 20171205
  Transmission Date: 20180321
  Serious: Yes (Hospitalization, Other)
  Sender: FDA-Public Use
  Company Number: US-GILEAD-2017-0303012

PATIENT
  Age: 68 Year
  Sex: Female
  Weight: 62.59 kg

DRUGS (10)
  1. LASIX [Concomitant]
     Active Substance: FUROSEMIDE
  2. AMBRISENTAN [Suspect]
     Active Substance: AMBRISENTAN
     Indication: PULMONARY HYPERTENSION
     Dosage: 10 MG, QD
     Route: 048
     Dates: start: 201608
  3. AMBRISENTAN [Suspect]
     Active Substance: AMBRISENTAN
     Indication: HEART DISEASE CONGENITAL
  4. SILDENAFIL. [Concomitant]
     Active Substance: SILDENAFIL
  5. WARFARIN [Concomitant]
     Active Substance: WARFARIN
  6. AMBRISENTAN [Suspect]
     Active Substance: AMBRISENTAN
     Indication: PULMONARY ARTERIAL HYPERTENSION
  7. K-TAB [Concomitant]
     Active Substance: POTASSIUM CHLORIDE
  8. AMBRISENTAN [Suspect]
     Active Substance: AMBRISENTAN
     Indication: CONNECTIVE TISSUE DISORDER
  9. SELEXIPAG [Concomitant]
     Active Substance: SELEXIPAG
  10. OMEPRAZOLE. [Concomitant]
     Active Substance: OMEPRAZOLE

REACTIONS (6)
  - Cardiac failure [Not Recovered/Not Resolved]
  - Hypoxia [Unknown]
  - Presyncope [Unknown]
  - Dyspnoea [Unknown]
  - Oedema [Unknown]
  - Syncope [Recovered/Resolved]

NARRATIVE: CASE EVENT DATE: 20171018
